FAERS Safety Report 10166435 (Version 1)
Quarter: 2014Q2

REPORT INFORMATION
  Report Type: Spontaneous
  Country: US (occurrence: None)
  Receive Date: 20140509
  Receipt Date: 20140509
  Transmission Date: 20141212
  Serious: Yes (Life-Threatening, Hospitalization)
  Sender: FDA-Public Use
  Company Number: None

PATIENT
  Age: 37 Year
  Sex: Female
  Weight: 89 kg

DRUGS (7)
  1. XARELTO [Suspect]
     Indication: DEEP VEIN THROMBOSIS
     Dosage: 1CAPSULE, BID, ORAL
     Route: 048
     Dates: start: 20140401, end: 20140420
  2. DICYCLOMINE [Concomitant]
  3. GABAPENTIN 300 MG [Concomitant]
  4. MS CONTIN 60 MG [Concomitant]
  5. OXYCODONE 10 MG [Concomitant]
  6. PROMETHAZINE 12.5 MG [Concomitant]
  7. TOPIRAMATE 50 MG [Concomitant]

REACTIONS (5)
  - Nausea [None]
  - Abdominal pain [None]
  - Small intestinal obstruction [None]
  - Pelvic venous thrombosis [None]
  - Peripheral swelling [None]
